FAERS Safety Report 5423946-4 (Version None)
Quarter: 2007Q3

REPORT INFORMATION
  Report Type: 
  Country: None (occurrence: None)
  Receive Date: 20070727
  Receipt Date: 20060725
  Transmission Date: 20080115
  Serious: Yes (Hospitalization, Other)
  Sender: FDA-Public Use
  Company Number: THYM-10980

PATIENT
  Age: 45 Year
  Sex: Female
  Weight: 54.8852 kg

DRUGS (11)
  1. THYMOGLOBULIN [Suspect]
     Indication: RENAL TRANSPLANT
     Dosage: 100 MG QD IV
     Route: 042
     Dates: start: 20051215, end: 20051217
  2. FK-506 [Concomitant]
  3. MYCOPHENOLATE MOFETIL [Concomitant]
  4. PREDNISONE [Concomitant]
  5. VALGANCICLOVIR HCL [Concomitant]
  6. CALCITRIOL [Concomitant]
  7. ZANTAC 150 [Concomitant]
  8. BACTRIM [Concomitant]
  9. TYLENOL W/ CODEINE NO. 3 [Concomitant]
  10. MECLOFENAMATE [Concomitant]
  11. NYSTATIN [Concomitant]

REACTIONS (2)
  - ACUTE MYOCARDIAL INFARCTION [None]
  - RENAL FAILURE ACUTE [None]
